FAERS Safety Report 7202512-4 (Version None)
Quarter: 2010Q4

REPORT INFORMATION
  Report Type: 
  Country: None (occurrence: None)
  Receive Date: 20101229
  Receipt Date: 20101224
  Transmission Date: 20110411
  Serious: Yes (Death, Other)
  Sender: FDA-Public Use
  Company Number: PHHY2010US88003

PATIENT

DRUGS (2)
  1. HYDROXYCARBAMIDE [Suspect]
     Indication: ESSENTIAL THROMBOCYTHAEMIA
  2. ANAGRELIDE HCL [Suspect]

REACTIONS (4)
  - ACUTE MYELOID LEUKAEMIA [None]
  - COMPLICATIONS OF TRANSPLANT SURGERY [None]
  - DISEASE PROGRESSION [None]
  - MYELODYSPLASTIC SYNDROME [None]
